FAERS Safety Report 6967223-9 (Version None)
Quarter: 2010Q3

REPORT INFORMATION
  Report Type: 
  Country: None (occurrence: None)
  Receive Date: 20100907
  Receipt Date: 20100826
  Transmission Date: 20110219
  Serious: Yes (Hospitalization)
  Sender: FDA-Public Use
  Company Number: JP-ASTRAZENECA-2010SE40354

PATIENT
  Age: 48 Year
  Sex: Female

DRUGS (3)
  1. NOLVADEX [Suspect]
     Indication: BREAST CANCER
     Route: 048
  2. TEGRETOL [Suspect]
     Dosage: DOSE UNKNOWN
     Route: 065
  3. THYRADIN [Suspect]
     Dosage: DOSE UNKNOWN
     Route: 065

REACTIONS (1)
  - OSTEONECROSIS [None]
